FAERS Safety Report 7564005-4 (Version None)
Quarter: 2011Q2

REPORT INFORMATION
  Report Type: 
  Country: None (occurrence: None)
  Receive Date: 20110622
  Receipt Date: 20110615
  Transmission Date: 20111010
  Serious: Yes (Hospitalization)
  Sender: FDA-Public Use
  Company Number: US-ABBOTT-11P-163-0732065-00

PATIENT
  Sex: Male
  Weight: 77.634 kg

DRUGS (3)
  1. UNKNOWN HYPOGLYCEMIC [Concomitant]
     Indication: DIABETES MELLITUS
     Route: 048
     Dates: start: 20050101
  2. NIASPAN [Suspect]
     Indication: BLOOD CHOLESTEROL INCREASED
     Route: 048
     Dates: start: 20060101
  3. UNKNOWN PAIN MEDICATION [Concomitant]
     Indication: DISCOMFORT
     Route: 048

REACTIONS (4)
  - FALL [None]
  - MOBILITY DECREASED [None]
  - LOWER LIMB FRACTURE [None]
  - BLOOD GLUCOSE INCREASED [None]
